FAERS Safety Report 19174061 (Version 2)
Quarter: 2022Q2

REPORT INFORMATION
  Report Type: Spontaneous
  Country: US (occurrence: US)
  Receive Date: 20210423
  Receipt Date: 20220413
  Transmission Date: 20220721
  Serious: No
  Sender: FDA-Public Use
  Company Number: US-PFIZER INC-2021354565

PATIENT
  Age: 80 Year
  Sex: Female

DRUGS (2)
  1. SUTENT [Suspect]
     Active Substance: SUNITINIB MALATE
     Dosage: 50 MG
  2. SUTENT [Suspect]
     Active Substance: SUNITINIB MALATE
     Dosage: 12.5 MG, CYCLIC (TAKE 1 (ONE) CAPSULE BY MOUTH ONCE A DAY 4 WEEKS ON/2WEEK OFF)

REACTIONS (3)
  - Skin exfoliation [Unknown]
  - Skin erosion [Unknown]
  - Alopecia [Unknown]
